FAERS Safety Report 6313972-5 (Version None)
Quarter: 2009Q3

REPORT INFORMATION
  Report Type: 
  Country: None (occurrence: None)
  Receive Date: 20090818
  Receipt Date: 20090807
  Transmission Date: 20100115
  Serious: Yes (Hospitalization, Other)
  Sender: FDA-Public Use
  Company Number: PHHY2008GB09651

PATIENT
  Sex: Male
  Weight: 100 kg

DRUGS (9)
  1. CLOZARIL [Suspect]
     Indication: SCHIZOPHRENIA
     Dosage: 750 MG/DAY
     Dates: start: 19910402
  2. CLOZARIL [Suspect]
     Indication: PSYCHOTIC DISORDER
     Dosage: 300 MG/DAY
     Route: 048
     Dates: end: 20080318
  3. CLOZARIL [Suspect]
     Dosage: UNK
     Dates: start: 20080602
  4. AMISULPRIDE [Suspect]
     Indication: PSYCHOTIC DISORDER
     Dosage: 400 MG/DAY
     Dates: start: 20071201, end: 20080318
  5. METFORMIN HCL [Concomitant]
     Indication: TYPE 2 DIABETES MELLITUS
     Dosage: 1 G, BID
     Route: 048
  6. CITALOPRAM HYDROBROMIDE [Concomitant]
     Indication: GENERALISED ANXIETY DISORDER
     Dosage: 20 MG/DAY
     Route: 048
     Dates: start: 20060101
  7. RAMIPRIL [Concomitant]
     Indication: HYPERTENSION
     Dosage: 1.25 MG/DAY
     Route: 048
  8. SIMVASTATIN [Concomitant]
     Indication: HYPERCHOLESTEROLAEMIA
     Route: 048
  9. QUETIAPINE [Concomitant]

REACTIONS (16)
  - ACCIDENTAL OVERDOSE [None]
  - AGITATION [None]
  - BLOOD CREATINE PHOSPHOKINASE INCREASED [None]
  - CONFUSIONAL STATE [None]
  - DYSARTHRIA [None]
  - DYSPHAGIA [None]
  - EYE INFECTION [None]
  - HYPERHIDROSIS [None]
  - HYPOTONIA [None]
  - MENTAL DISORDER [None]
  - MUSCULOSKELETAL STIFFNESS [None]
  - NEUROLEPTIC MALIGNANT SYNDROME [None]
  - PSYCHOTIC DISORDER [None]
  - SALIVARY HYPERSECRETION [None]
  - TREATMENT NONCOMPLIANCE [None]
  - URINARY INCONTINENCE [None]
